FAERS Safety Report 12653589 (Version 5)
Quarter: 2016Q3

REPORT INFORMATION
  Report Type: Spontaneous
  Country: US (occurrence: US)
  Receive Date: 20160815
  Receipt Date: 20160922
  Transmission Date: 20161109
  Serious: Yes (Hospitalization, Other)
  Sender: FDA-Public Use
  Company Number: US-ALLERGAN-1664153US

PATIENT
  Age: 91 Year
  Sex: Female

DRUGS (2)
  1. REFRESH P.M. [Suspect]
     Active Substance: MINERAL OIL\PETROLATUM
     Indication: DRY EYE
     Dosage: UNK
     Route: 061
     Dates: start: 2015
  2. LACRILUBE [Concomitant]
     Indication: DRY EYE
     Route: 047

REACTIONS (6)
  - Clostridium difficile infection [Not Recovered/Not Resolved]
  - Cerebrovascular accident [Recovering/Resolving]
  - Vision blurred [Recovering/Resolving]
  - Drug prescribing error [Unknown]
  - Staphylococcal infection [Unknown]
  - Drug dispensing error [Unknown]

NARRATIVE: CASE EVENT DATE: 2015
